FAERS Safety Report 8311505 (Version 4)
Quarter: 2013Q1

REPORT INFORMATION
  Report Type: Spontaneous
  Country: US (occurrence: US)
  Receive Date: 20111227
  Receipt Date: 20130111
  Transmission Date: 20140127
  Serious: Yes (Hospitalization)
  Sender: FDA-Public Use
  Company Number: US-BAYER-2011-122101

PATIENT
  Age: 41 Year
  Sex: Female

DRUGS (10)
  1. YAZ [Suspect]
     Indication: ACNE
     Dosage: UNK
     Dates: start: 2005
  2. YASMIN [Suspect]
     Indication: ACNE
     Dosage: UNK
     Dates: start: 2005
  3. OCELLA [Suspect]
     Dosage: UNK
     Dates: start: 2005
  4. NSAID^S [Concomitant]
  5. MACROGOL [Concomitant]
  6. HYDROCORTISONE W/PRAMOXINE [Concomitant]
     Dosage: 2.5 %, UNK
  7. DIFLUNISAL [Concomitant]
     Dosage: 500 MG, UNK
  8. ZOLOFT [Concomitant]
     Dosage: 50 MG, UNK
  9. MUSCLE RELAXANTS [Concomitant]
     Dosage: UNK
     Dates: start: 20050116
  10. VICODIN [Concomitant]
     Indication: PAIN

REACTIONS (2)
  - Pulmonary embolism [Recovered/Resolved]
  - Pain [Recovered/Resolved]
